FAERS Safety Report 10157003 (Version 1)
Quarter: 2014Q2

REPORT INFORMATION
  Report Type: Spontaneous
  Country: US (occurrence: None)
  Receive Date: 20140506
  Receipt Date: 20140506
  Transmission Date: 20141212
  Serious: No
  Sender: FDA-Public Use
  Company Number: None

PATIENT
  Age: 72 Year
  Sex: Male
  Weight: 52.62 kg

DRUGS (5)
  1. PROLIA [Suspect]
     Dates: start: 20140228
  2. PLAVIX [Concomitant]
  3. RANITIDINE [Concomitant]
  4. GABAPENTINE [Concomitant]
  5. CA + VIT. D3 [Concomitant]

REACTIONS (2)
  - Tachycardia [None]
  - Hyperthyroidism [None]
